FAERS Safety Report 7777401-7 (Version None)
Quarter: 2011Q3

REPORT INFORMATION
  Report Type: 
  Country: None (occurrence: None)
  Receive Date: 20110926
  Receipt Date: 20110919
  Transmission Date: 20111222
  Serious: Yes (Other)
  Sender: FDA-Public Use
  Company Number: KR-JNJFOC-20110904926

PATIENT
  Age: 14 Year
  Sex: Male

DRUGS (8)
  1. QUETIAPINE [Concomitant]
     Indication: HYPERPROLACTINAEMIA
     Route: 048
     Dates: start: 20100615
  2. BUSPIRONE HCL [Concomitant]
     Route: 048
  3. CONCERTA [Suspect]
     Indication: DISTURBANCE IN ATTENTION
     Route: 048
     Dates: start: 20100430
  4. BUSPIRONE HCL [Concomitant]
     Route: 048
     Dates: start: 20100615
  5. QUETIAPINE [Concomitant]
     Route: 048
     Dates: start: 20100430
  6. BUSPIRONE HCL [Concomitant]
     Route: 048
     Dates: start: 20100416
  7. CONCERTA [Suspect]
     Route: 048
     Dates: start: 20100615, end: 20100701
  8. CONCERTA [Suspect]
     Route: 048
     Dates: start: 20100701

REACTIONS (3)
  - AGGRESSION [None]
  - FEELING ABNORMAL [None]
  - TIC [None]
